FAERS Safety Report 16024722 (Version 7)
Quarter: 2020Q1

REPORT INFORMATION
  Report Type: Spontaneous
  Country: US (occurrence: US)
  Receive Date: 20190301
  Receipt Date: 20200324
  Transmission Date: 20200409
  Serious: Yes (Death, Hospitalization, Other)
  Sender: FDA-Public Use
  Company Number: US-LEXICON PHARMACEUTICALS, INC-19-1606-00187

PATIENT
  Age: 54 Year
  Sex: Male

DRUGS (4)
  1. SANDOSTATIN [Concomitant]
     Active Substance: OCTREOTIDE ACETATE
  2. TELOTRISTAT ETHYL [Suspect]
     Active Substance: TELOTRISTAT ETHYL
     Indication: NEUROENDOCRINE TUMOUR
     Route: 048
     Dates: start: 20190926
  3. TELOTRISTAT ETHYL [Suspect]
     Active Substance: TELOTRISTAT ETHYL
     Indication: CARCINOID TUMOUR OF THE SMALL BOWEL
     Route: 048
     Dates: start: 20190102
  4. METOPROLOL. [Concomitant]
     Active Substance: METOPROLOL

REACTIONS (14)
  - Taste disorder [Unknown]
  - Nasopharyngitis [Unknown]
  - Decreased appetite [Unknown]
  - Weight increased [Unknown]
  - Nausea [Unknown]
  - Constipation [Unknown]
  - Hospitalisation [Unknown]
  - Flushing [Unknown]
  - Abdominal pain [Unknown]
  - Death [Fatal]
  - Radiotherapy [Unknown]
  - Fatigue [Unknown]
  - Fluid retention [Unknown]
  - Dyspnoea [Unknown]
